FAERS Safety Report 12483888 (Version 1)
Quarter: 2016Q2

REPORT INFORMATION
  Report Type: Spontaneous
  Country: US (occurrence: None)
  Receive Date: 20160620
  Receipt Date: 20160620
  Transmission Date: 20160815
  Serious: Yes (Hospitalization)
  Sender: FDA-Public Use
  Company Number: None

PATIENT
  Age: 67 Year
  Sex: Male
  Weight: 78 kg

DRUGS (3)
  1. BENDAMUSTINE HYDROCHLORIDE. [Suspect]
     Active Substance: BENDAMUSTINE HYDROCHLORIDE
     Dates: end: 20160429
  2. RITUXIMAB (MOAB C2B8 ANTI CD20, CHIMERIC) [Suspect]
     Active Substance: RITUXIMAB
     Dates: end: 20160428
  3. VELCADE [Suspect]
     Active Substance: BORTEZOMIB
     Dates: end: 20160505

REACTIONS (8)
  - Respiratory failure [None]
  - Asthenia [None]
  - Pneumonia [None]
  - Stenotrophomonas test positive [None]
  - Acute kidney injury [None]
  - Weaning failure [None]
  - Atrial fibrillation [None]
  - Metabolic encephalopathy [None]

NARRATIVE: CASE EVENT DATE: 20160607
